FAERS Safety Report 9571494 (Version 1)
Quarter: 2013Q4

REPORT INFORMATION
  Report Type: Spontaneous
  Country: US (occurrence: US)
  Receive Date: 20131001
  Receipt Date: 20131001
  Transmission Date: 20140711
  Serious: No
  Sender: FDA-Public Use
  Company Number: US-PFIZER INC-2013277190

PATIENT
  Age: 63 Year
  Sex: Female
  Weight: 64.85 kg

DRUGS (5)
  1. XELJANZ [Suspect]
     Indication: RHEUMATOID ARTHRITIS
     Dosage: 5 MG, 2X/DAY
     Route: 048
  2. SYNTHROID [Concomitant]
     Dosage: 50 UG, UNK
  3. PRAVACHOL [Concomitant]
     Dosage: 10 MG, UNK
  4. LISINOPRIL W/HYDROCHLOROTHIAZIDE [Concomitant]
     Dosage: LISINOPRIL (10)/HYDROCHLOROTHIAZIDE (12.5)
  5. PANTOPRAZOLE [Concomitant]
     Dosage: 20 MG, UNK

REACTIONS (2)
  - Abdominal discomfort [Unknown]
  - Diarrhoea [Unknown]
